FAERS Safety Report 7533085-4 (Version None)
Quarter: 2011Q2

REPORT INFORMATION
  Report Type: 
  Country: None (occurrence: None)
  Receive Date: 20110608
  Receipt Date: 20110526
  Transmission Date: 20111010
  Serious: Yes (Hospitalization, Other)
  Sender: FDA-Public Use
  Company Number: DE-MYLANLABS-2011S1010952

PATIENT
  Age: 31 Year
  Sex: Female
  Weight: 55 kg

DRUGS (6)
  1. AUGMENTIN '125' [Concomitant]
     Indication: URINARY TRACT INFECTION
     Dosage: 250 [MG/D (2X125) ] / 1750 [MG/D (2X875) ]
     Route: 048
     Dates: start: 20091205, end: 20091206
  2. ESCITALOPRAM [Suspect]
     Indication: DEPRESSION
     Dosage: 10 [MG/D ]
     Route: 048
     Dates: start: 20091001, end: 20091201
  3. MIRTAZAPINE [Suspect]
     Dosage: 30 [MG/D ]/ UNTIL GW 8.5 30 MG/D, REST OF PREGNANCY 15 MG/D
     Route: 048
     Dates: start: 20091201, end: 20100612
  4. ACETAMINOPHEN [Concomitant]
     Indication: PAIN
     Dosage: 500 [MG/D ]
     Route: 048
     Dates: start: 20091205, end: 20091208
  5. FOLIC ACID [Concomitant]
     Indication: PROPHYLAXIS OF NEURAL TUBE DEFECT
     Dosage: 0.8 [MG/D ]
     Route: 048
  6. MIRTAZAPINE [Suspect]
     Indication: DEPRESSION
     Dosage: 30 [MG/D ]/ UNTIL GW 8.5 30 MG/D, REST OF PREGNANCY 15 MG/D
     Route: 048
     Dates: start: 20091001, end: 20091201

REACTIONS (3)
  - DRUG EXPOSURE DURING PREGNANCY [None]
  - CAESAREAN SECTION [None]
  - PRE-ECLAMPSIA [None]
